FAERS Safety Report 5736517-7 (Version None)
Quarter: 2008Q2

REPORT INFORMATION
  Report Type: 
  Country: None (occurrence: None)
  Receive Date: 20080513
  Receipt Date: 20080507
  Transmission Date: 20081010
  Serious: Yes (Other)
  Sender: FDA-Public Use
  Company Number: BR-BRISTOL-MYERS SQUIBB COMPANY-14184311

PATIENT

DRUGS (4)
  1. HYDROXYUREA [Suspect]
     Indication: POLYCYTHAEMIA VERA
  2. INTERFERON [Suspect]
  3. BUSULPHAN [Suspect]
  4. ACETYLSALICYLIC ACID SRT [Suspect]

REACTIONS (11)
  - ACUTE MYELOID LEUKAEMIA [None]
  - ACUTE MYOCARDIAL INFARCTION [None]
  - ARTERIAL THROMBOSIS [None]
  - CEREBROVASCULAR ACCIDENT [None]
  - CORONARY ARTERY INSUFFICIENCY [None]
  - DEEP VEIN THROMBOSIS [None]
  - HAEMORRHAGE [None]
  - MYELOFIBROSIS [None]
  - PULMONARY EMBOLISM [None]
  - THROMBOSIS [None]
  - TRANSIENT ISCHAEMIC ATTACK [None]
